FAERS Safety Report 7269662-8 (Version None)
Quarter: 2011Q1

REPORT INFORMATION
  Report Type: 
  Country: None (occurrence: None)
  Receive Date: 20110124
  Receipt Date: 20110107
  Transmission Date: 20110831
  Serious: No
  Sender: FDA-Public Use
  Company Number: 2011-00005

PATIENT
  Age: 70 Year
  Sex: Female

DRUGS (8)
  1. ASPIRIN [Concomitant]
  2. CENTRUM SIILVER [Concomitant]
  3. METOPROLOL [Concomitant]
  4. PREVASTATIN [Concomitant]
  5. ZICAM COLD REMEDY ORAL MIST [Suspect]
     Dosage: 1 DOSE
     Dates: start: 20110106, end: 20110106
  6. HYDROCHLOROTHIAZIDE [Concomitant]
  7. OSCAL [Concomitant]
  8. MSM GLUCOSAMINE [Concomitant]

REACTIONS (1)
  - AGEUSIA [None]
